FAERS Safety Report 8882224 (Version 3)
Quarter: 2012Q4

REPORT INFORMATION
  Report Type: Report from Study
  Country: FR (occurrence: FR)
  Receive Date: 20121105
  Receipt Date: 20121127
  Transmission Date: 20130627
  Serious: Yes (Hospitalization)
  Sender: FDA-Public Use
  Company Number: FR-MILLENNIUM PHARMACEUTICALS, INC.-2012-05777

PATIENT

DRUGS (8)
  1. VELCADE [Suspect]
     Indication: MULTIPLE MYELOMA
     Dosage: 1.3 mg/m2, UNK
     Route: 065
     Dates: start: 20120629, end: 20120730
  2. REVLIMID [Suspect]
     Indication: MULTIPLE MYELOMA
     Dosage: 25 mg, UNK
     Dates: start: 20120629, end: 20120802
  3. DEXAMETHASONE [Suspect]
     Indication: MULTIPLE MYELOMA
     Dosage: 20 mg, UNK
     Dates: start: 20120629, end: 20120731
  4. BACTRIM [Concomitant]
     Indication: PROPHYLAXIS
     Dosage: UNK
     Route: 048
     Dates: start: 20120629
  5. LEDERFOLIN                         /00566702/ [Concomitant]
     Indication: PROPHYLAXIS
     Dosage: 15 mg, UNK
     Route: 048
     Dates: start: 20120629
  6. CLAMOXYL                           /00249601/ [Concomitant]
     Indication: PROPHYLAXIS
     Dosage: 500 mg, UNK
     Route: 048
     Dates: start: 20120629
  7. ZELITREX                           /01269701/ [Concomitant]
     Indication: PROPHYLAXIS
     Dosage: mg
     Route: 048
     Dates: start: 20120629
  8. INNOHEP                            /00889602/ [Concomitant]
     Indication: PROPHYLAXIS
     Dosage: UNK
     Route: 058

REACTIONS (2)
  - Fasciitis [Recovered/Resolved]
  - Cellulitis [None]
